FAERS Safety Report 8171278-6 (Version None)
Quarter: 2012Q1

REPORT INFORMATION
  Report Type: 
  Country: None (occurrence: None)
  Receive Date: 20120228
  Receipt Date: 20120224
  Transmission Date: 20120608
  Serious: Yes (Other)
  Sender: FDA-Public Use
  Company Number: JP-PFIZER INC-2012025181

PATIENT
  Age: 45 Year
  Sex: Male

DRUGS (8)
  1. ZOLOFT [Suspect]
     Dosage: UNK
     Route: 048
     Dates: end: 20120115
  2. LUVOX [Suspect]
     Dosage: 150 MG, DAILY
     Dates: start: 20120116, end: 20120129
  3. ZOLOFT [Suspect]
     Dosage: 75 MG, DAILY
     Route: 048
     Dates: start: 20110921, end: 20110925
  4. ZOLOFT [Suspect]
     Indication: PANIC DISORDER
     Dosage: 25 MG, DAILY
     Route: 048
     Dates: start: 20110905, end: 20110911
  5. ZOLOFT [Suspect]
     Dosage: 100 MG, DAILY
     Route: 048
     Dates: start: 20110926, end: 20111226
  6. LUVOX [Suspect]
     Dosage: 100 MG, DAILY
     Dates: start: 20120130
  7. ZOLOFT [Suspect]
     Dosage: 50 MG, DAILY
     Route: 048
     Dates: start: 20110912, end: 20110920
  8. NORVASC [Suspect]
     Indication: HYPERTENSION
     Dosage: 5 MG, UNK

REACTIONS (6)
  - HYPERTENSION [None]
  - CHEST DISCOMFORT [None]
  - HEADACHE [None]
  - THROAT IRRITATION [None]
  - HYPERHIDROSIS [None]
  - INSOMNIA [None]
